FAERS Safety Report 4620034-1 (Version None)
Quarter: 2005Q1

REPORT INFORMATION
  Report Type: 
  Country: None (occurrence: None)
  Receive Date: 20050324
  Receipt Date: 20050324
  Transmission Date: 20050727
  Serious: No
  Sender: FDA-Public Use
  Company Number: None

PATIENT
  Sex: Male

DRUGS (1)
  1. PENICILLIN [Suspect]
     Indication: ENDOCARDITIS
     Dosage: 3 MU Q 4 H IV
     Route: 042
     Dates: start: 20041206

REACTIONS (1)
  - RASH GENERALISED [None]
